FAERS Safety Report 6637995-1 (Version None)
Quarter: 2010Q1

REPORT INFORMATION
  Report Type: 
  Country: None (occurrence: None)
  Receive Date: 20100317
  Receipt Date: 20100311
  Transmission Date: 20100710
  Serious: No
  Sender: FDA-Public Use
  Company Number: FR-EISAI INC.-E2020-06188-SPO-FR

PATIENT
  Age: 89 Year
  Sex: Female

DRUGS (7)
  1. ARICEPT [Suspect]
     Route: 048
  2. TEMERIT [Interacting]
     Route: 048
  3. RISPERIDONE [Concomitant]
     Route: 048
  4. FUROSEMIDE [Concomitant]
     Route: 048
  5. PREVISCAN [Concomitant]
     Route: 048
  6. RAMIPRIL [Concomitant]
     Route: 048
  7. ADANCOR [Concomitant]

REACTIONS (4)
  - BRADYCARDIA [None]
  - CONVULSION [None]
  - DRUG INTERACTION [None]
  - SYNCOPE [None]
